FAERS Safety Report 15826110 (Version 1)
Quarter: 2019Q1

REPORT INFORMATION
  Report Type: Spontaneous
  Country: US (occurrence: US)
  Receive Date: 20190115
  Receipt Date: 20190115
  Transmission Date: 20190417
  Serious: Yes (Other)
  Sender: FDA-Public Use
  Company Number: None

PATIENT
  Age: 43 Year
  Sex: Female
  Weight: 98.1 kg

DRUGS (2)
  1. AMLODOPINE BESYLATE 5MG TABLETS MFG LUPIN [Suspect]
     Active Substance: AMLODIPINE BESYLATE
     Indication: HYPERTENSION
     Dosage: ?          QUANTITY:90 TABLET(S);?
     Route: 048
     Dates: start: 20190101, end: 20190110
  2. ASPIRIN. [Concomitant]
     Active Substance: ASPIRIN

REACTIONS (6)
  - Malaise [None]
  - Hypertension [None]
  - Headache [None]
  - Product substitution issue [None]
  - Therapy non-responder [None]
  - Migraine [None]

NARRATIVE: CASE EVENT DATE: 20190106
